FAERS Safety Report 9758709 (Version 1)
Quarter: 2013Q4

REPORT INFORMATION
  Report Type: Spontaneous
  Country: US (occurrence: US)
  Receive Date: 20131216
  Receipt Date: 20131216
  Transmission Date: 20140711
  Serious: No
  Sender: FDA-Public Use
  Company Number: US-009507513-1310USA015068

PATIENT
  Sex: Female
  Weight: 86.62 kg

DRUGS (2)
  1. NEXPLANON [Suspect]
     Indication: CONTRACEPTION
     Dosage: 1 DF/3 YEARS
     Route: 059
     Dates: start: 20131002, end: 20131024
  2. NEXPLANON [Suspect]
     Dosage: 1 DF/3 YEARS
     Route: 059
     Dates: start: 20131024

REACTIONS (2)
  - Device breakage [Recovered/Resolved]
  - No adverse event [Unknown]
